FAERS Safety Report 6156970-7 (Version None)
Quarter: 2009Q2

REPORT INFORMATION
  Report Type: 
  Country: None (occurrence: None)
  Receive Date: 20090416
  Receipt Date: 20090407
  Transmission Date: 20091009
  Serious: Yes (Hospitalization)
  Sender: FDA-Public Use
  Company Number: B0570052A

PATIENT
  Age: 2 Year
  Sex: Female

DRUGS (5)
  1. AMOXICILLIN [Suspect]
     Indication: BRONCHOPNEUMONIA
  2. CEFTRIAXONE [Suspect]
     Dosage: 100MGK PER DAY
  3. OXACILLIN [Suspect]
     Dosage: 200MGK PER DAY
  4. METHYLPREDNISOLONE 4MG TAB [Concomitant]
     Indication: VASCULITIS
     Route: 042
  5. CYCLOPHOSPHAMIDE [Concomitant]
     Indication: VASCULITIS

REACTIONS (18)
  - ALANINE AMINOTRANSFERASE INCREASED [None]
  - CONDITION AGGRAVATED [None]
  - DERMATITIS [None]
  - DRUG ERUPTION [None]
  - DRUG RASH WITH EOSINOPHILIA AND SYSTEMIC SYMPTOMS [None]
  - HEPATOMEGALY [None]
  - INFLAMMATION [None]
  - LUNG INFILTRATION [None]
  - LYMPHOCYTE MORPHOLOGY ABNORMAL [None]
  - MYOCARDITIS [None]
  - NECROSIS [None]
  - OEDEMA PERIPHERAL [None]
  - PANCYTOPENIA [None]
  - PYREXIA [None]
  - RASH [None]
  - RASH MACULO-PAPULAR [None]
  - TRANSAMINASES INCREASED [None]
  - VASCULITIS [None]
